FAERS Safety Report 9808754 (Version 6)
Quarter: 2014Q3

REPORT INFORMATION
  Report Type: Spontaneous
  Country: GB (occurrence: GB)
  Receive Date: 20140110
  Receipt Date: 20140701
  Transmission Date: 20150326
  Serious: Yes (Hospitalization, Other)
  Sender: FDA-Public Use
  Company Number: GB-ACTAVISPR-2013-24396

PATIENT
  Age: 89 Year
  Sex: Female

DRUGS (4)
  1. KENTERA (WATSON LABORATORIES) [Suspect]
     Active Substance: OXYBUTYNIN
     Indication: HYPERTONIC BLADDER
     Dosage: 1 DF, 2/WEEK
     Route: 062
  2. BETAHISTINE [Concomitant]
     Active Substance: BETAHISTINE
     Indication: PRODUCT USED FOR UNKNOWN INDICATION
     Dosage: UNK, UNKNOWN
     Route: 065
  3. FERROUS FUMARATE [Concomitant]
     Active Substance: FERROUS FUMARATE
     Indication: PRODUCT USED FOR UNKNOWN INDICATION
     Dosage: UNK, UNKNOWN
     Route: 065
  4. OMEPRAZOLE. [Concomitant]
     Active Substance: OMEPRAZOLE
     Indication: PRODUCT USED FOR UNKNOWN INDICATION
     Dosage: UNK, UNKNOWN
     Route: 065

REACTIONS (21)
  - Drug administration error [Unknown]
  - Abdominal pain [Not Recovered/Not Resolved]
  - Liver function test abnormal [Not Recovered/Not Resolved]
  - Back pain [Unknown]
  - Hyperphagia [Not Recovered/Not Resolved]
  - Communication disorder [Unknown]
  - Pain [Not Recovered/Not Resolved]
  - Nocturia [Not Recovered/Not Resolved]
  - General physical health deterioration [Unknown]
  - Cerebrovascular accident [Unknown]
  - Drug administered at inappropriate site [Unknown]
  - Confusional state [Not Recovered/Not Resolved]
  - Malaise [Not Recovered/Not Resolved]
  - Fall [Unknown]
  - Pelvic fracture [Unknown]
  - Overdose [Unknown]
  - Glassy eyes [Not Recovered/Not Resolved]
  - Dry mouth [Not Recovered/Not Resolved]
  - Fatigue [Not Recovered/Not Resolved]
  - Hallucination [Unknown]
  - Nausea [Unknown]

NARRATIVE: CASE EVENT DATE: 201206
